FAERS Safety Report 6546386-3 (Version None)
Quarter: 2010Q1

REPORT INFORMATION
  Report Type: 
  Country: None (occurrence: None)
  Receive Date: 20100114
  Receipt Date: 20091113
  Transmission Date: 20100710
  Serious: No
  Sender: FDA-Public Use
  Company Number: 2009BM000312

PATIENT
  Age: 5 Year
  Sex: Female

DRUGS (3)
  1. KUVAN [Suspect]
     Indication: PHENYLKETONURIA
     Dosage: 200 MG;BID;PO ; 100 MG;BID;PO
     Route: 048
     Dates: start: 20091001, end: 20091216
  2. KUVAN [Suspect]
     Indication: PHENYLKETONURIA
     Dosage: 200 MG;BID;PO ; 100 MG;BID;PO
     Route: 048
     Dates: start: 20091021
  3. NUTRIENTS WITHOUT PHENYLALANINE [Concomitant]

REACTIONS (6)
  - ANGER [None]
  - CONDUCT DISORDER [None]
  - HEADACHE [None]
  - OPPOSITIONAL DEFIANT DISORDER [None]
  - RHINORRHOEA [None]
  - SOCIAL AVOIDANT BEHAVIOUR [None]
